FAERS Safety Report 13651337 (Version 12)
Quarter: 2020Q1

REPORT INFORMATION
  Report Type: Spontaneous
  Country: US (occurrence: US)
  Receive Date: 20170614
  Receipt Date: 20200227
  Transmission Date: 20200409
  Serious: Yes (Hospitalization, Other)
  Sender: FDA-Public Use
  Company Number: US-PFIZER INC-2017259795

PATIENT
  Age: 49 Year
  Sex: Male
  Weight: 122.45 kg

DRUGS (6)
  1. DILANTIN [Suspect]
     Active Substance: PHENYTOIN
     Indication: EPILEPSY
     Dosage: UNK
     Dates: start: 198211
  2. PHENOBARBITAL. [Concomitant]
     Active Substance: PHENOBARBITAL
     Indication: SEIZURE
     Dosage: 3 PILLS AT BEDTIME
     Dates: start: 197402
  3. DILANTIN [Suspect]
     Active Substance: PHENYTOIN
     Dosage: 500 MG, 1X/DAY (5-100 TABS AT BEDTIME)
     Route: 048
  4. DILANTIN [Suspect]
     Active Substance: PHENYTOIN
     Indication: EPILEPSY
     Dosage: 100 MG, UNK (QUANTITY FOR 90 DAYS: 450)
  5. KEPPRA [Concomitant]
     Active Substance: LEVETIRACETAM
     Dosage: 750 MG, 2X/DAY
  6. DILANTIN [Suspect]
     Active Substance: PHENYTOIN
     Dosage: UNK

REACTIONS (12)
  - Head injury [Unknown]
  - Hypoacusis [Unknown]
  - Loss of personal independence in daily activities [Unknown]
  - Cerebral haemorrhage [Unknown]
  - Generalised tonic-clonic seizure [Unknown]
  - Seizure [Recovered/Resolved with Sequelae]
  - Cerebral haematoma [Unknown]
  - Fall [Unknown]
  - Colon cancer [Unknown]
  - Condition aggravated [Recovered/Resolved with Sequelae]
  - Partial seizures [Unknown]
  - Memory impairment [Unknown]

NARRATIVE: CASE EVENT DATE: 20160601
